FAERS Safety Report 25894688 (Version 4)
Quarter: 2025Q4

REPORT INFORMATION
  Report Type: Spontaneous
  Country: US (occurrence: US)
  Receive Date: 20251008
  Receipt Date: 20251218
  Transmission Date: 20260118
  Serious: No
  Sender: SANDOZ
  Company Number: US-SANDOZ-SDZ2025US070998

PATIENT
  Sex: Female

DRUGS (1)
  1. ESTRADIOL [Suspect]
     Active Substance: ESTRADIOL
     Indication: Product used for unknown indication
     Dosage: 0.025 MG/1D
     Route: 062

REACTIONS (4)
  - Headache [Unknown]
  - Circumstance or information capable of leading to device use error [Unknown]
  - Device adhesion issue [Unknown]
  - Product availability issue [Unknown]
